FAERS Safety Report 14851386 (Version 1)
Quarter: 2018Q2

REPORT INFORMATION
  Report Type: Spontaneous
  Country: US (occurrence: US)
  Receive Date: 20180507
  Receipt Date: 20180507
  Transmission Date: 20180711
  Serious: Yes (Other)
  Sender: FDA-Public Use
  Company Number: US-CONCORDIA PHARMACEUTICALS INC.-GSH201805-001471

PATIENT
  Age: 49 Year
  Sex: Male

DRUGS (3)
  1. HYDROXYCHLOROQUINE [Suspect]
     Active Substance: HYDROXYCHLOROQUINE
     Indication: LUPUS NEPHRITIS
     Route: 065
  2. HYDROXYCHLOROQUINE [Suspect]
     Active Substance: HYDROXYCHLOROQUINE
     Indication: SYSTEMIC LUPUS ERYTHEMATOSUS
  3. PREDNISONE. [Concomitant]
     Active Substance: PREDNISONE

REACTIONS (12)
  - Right ventricular heave [Unknown]
  - Troponin T increased [Unknown]
  - Inflammatory marker increased [Unknown]
  - Ejection fraction decreased [Unknown]
  - Venous pressure jugular increased [Unknown]
  - Brain natriuretic peptide increased [Unknown]
  - Heart sounds abnormal [Unknown]
  - Tachycardia [Unknown]
  - Left ventricular dilatation [Unknown]
  - Left ventricular hypertrophy [Unknown]
  - Cardiomyopathy [Unknown]
  - Fibrosis [Unknown]
